FAERS Safety Report 6956500-3 (Version None)
Quarter: 2010Q3

REPORT INFORMATION
  Report Type: 
  Country: None (occurrence: None)
  Receive Date: 20100830
  Receipt Date: 20100820
  Transmission Date: 20110219
  Serious: Yes (Other)
  Sender: FDA-Public Use
  Company Number: US-AMGEN-QUU428189

PATIENT
  Sex: Female

DRUGS (1)
  1. NPLATE [Suspect]
     Indication: IDIOPATHIC THROMBOCYTOPENIC PURPURA
     Dates: start: 20100304, end: 20100511

REACTIONS (4)
  - MYELODYSPLASTIC SYNDROME [None]
  - MYELOFIBROSIS [None]
  - POLYCYTHAEMIA VERA [None]
  - THERAPEUTIC RESPONSE DECREASED [None]
